FAERS Safety Report 7064576-0 (Version None)
Quarter: 2010Q4

REPORT INFORMATION
  Report Type: 
  Country: None (occurrence: None)
  Receive Date: 20101022
  Receipt Date: 20101022
  Transmission Date: 20110411
  Serious: Yes (Other)
  Sender: FDA-Public Use
  Company Number: None

PATIENT
  Sex: Male

DRUGS (2)
  1. BACLOFEN [Suspect]
     Dosage: 10MG QD PO
     Route: 048
     Dates: start: 20100824, end: 20100825
  2. MELOXICAM [Suspect]
     Dosage: 7.5 MG QD PO
     Route: 048

REACTIONS (2)
  - DIZZINESS [None]
  - GAIT DISTURBANCE [None]
